FAERS Safety Report 4366882-7 (Version None)
Quarter: 2004Q2

REPORT INFORMATION
  Report Type: 
  Country: None (occurrence: None)
  Receive Date: 20040524
  Receipt Date: 20040513
  Transmission Date: 20050107
  Serious: Yes (Other)
  Sender: FDA-Public Use
  Company Number: CEL-2004-00818-ROC

PATIENT
  Age: 28 Year
  Sex: Female

DRUGS (6)
  1. DELSYM [Suspect]
     Indication: COUGH
     Dosage: 10ML Q12H PO
     Route: 048
     Dates: start: 20040401, end: 20040401
  2. SLEEP AID [Concomitant]
  3. TEGRETOL [Concomitant]
  4. FLONASE [Concomitant]
  5. FLOVENT [Concomitant]
  6. NEBULIZER TREATMENT [Concomitant]

REACTIONS (2)
  - CONVULSION [None]
  - DRUG LEVEL BELOW THERAPEUTIC [None]
